FAERS Safety Report 6766275-9 (Version None)
Quarter: 2010Q2

REPORT INFORMATION
  Report Type: 
  Country: None (occurrence: None)
  Receive Date: 20100611
  Receipt Date: 20100531
  Transmission Date: 20101027
  Serious: Yes (Other)
  Sender: FDA-Public Use
  Company Number: FR-PFIZER INC-2010014668

PATIENT
  Age: 50 Year
  Sex: Male

DRUGS (5)
  1. SOMAVERT [Suspect]
     Indication: ACROMEGALY
     Dosage: UNK
  2. SOMATULINE [Concomitant]
     Indication: ACROMEGALY
     Dosage: UNK
  3. BIGUANIDES [Concomitant]
     Dosage: UNK
  4. SITAGLIPTIN [Concomitant]
     Dosage: UNK
  5. STAGID [Concomitant]
     Dosage: UNK

REACTIONS (2)
  - RENAL FAILURE [None]
  - URINARY TRACT INFECTION BACTERIAL [None]
